FAERS Safety Report 13554389 (Version 1)
Quarter: 2017Q2

REPORT INFORMATION
  Report Type: Spontaneous
  Country: US (occurrence: US)
  Receive Date: 20170517
  Receipt Date: 20170517
  Transmission Date: 20170830
  Serious: Yes (Disabling)
  Sender: FDA-Public Use
  Company Number: None

PATIENT
  Age: 83 Year
  Sex: Female
  Weight: 99.88 kg

DRUGS (9)
  1. LOSARTIN [Concomitant]
     Active Substance: LOSARTAN
  2. BIPAP [Concomitant]
     Active Substance: DEVICE
  3. OXYCODONE [Concomitant]
     Active Substance: OXYCODONE
  4. INCRUSE ELLIPTA [Concomitant]
     Active Substance: UMECLIDINIUM BROMIDE
  5. AMLODIPINE [Concomitant]
     Active Substance: AMLODIPINE BESYLATE
  6. TYLENOL [Concomitant]
     Active Substance: ACETAMINOPHEN
  7. XIIDRA [Suspect]
     Active Substance: LIFITEGRAST
     Indication: DRY EYE
     Dosage: 1 DROP EACH EYE 2X DAY TWICE DAILY DROP IN EYE
     Dates: start: 20170329, end: 20170407
  8. SIMVASTATIN. [Concomitant]
     Active Substance: SIMVASTATIN
  9. LEVOTHYROXINE. [Concomitant]
     Active Substance: LEVOTHYROXINE

REACTIONS (5)
  - Sinus disorder [None]
  - Headache [None]
  - Facial pain [None]
  - Feeling abnormal [None]
  - Sinus pain [None]

NARRATIVE: CASE EVENT DATE: 20170411
